FAERS Safety Report 5903481-7 (Version None)
Quarter: 2008Q3

REPORT INFORMATION
  Report Type: 
  Country: None (occurrence: None)
  Receive Date: 20080919
  Receipt Date: 20080625
  Transmission Date: 20090109
  Serious: No
  Sender: FDA-Public Use
  Company Number: US-WYE-H04750308

PATIENT
  Age: 49 Year
  Sex: Female

DRUGS (4)
  1. PRISTIQ [Suspect]
     Indication: MAJOR DEPRESSION
     Dosage: 225 MG 1X PER 1 DAY, ORAL
     Route: 048
     Dates: start: 20080618, end: 20080623
  2. FIORICET [Concomitant]
  3. ACETAMINOPHEN [Concomitant]
  4. VICODIN [Concomitant]

REACTIONS (6)
  - ABNORMAL DREAMS [None]
  - ACCIDENTAL OVERDOSE [None]
  - DIARRHOEA [None]
  - DRUG ADMINISTRATION ERROR [None]
  - HYPERHIDROSIS [None]
  - NAUSEA [None]
